FAERS Safety Report 18475287 (Version 3)
Quarter: 2020Q4

REPORT INFORMATION
  Report Type: Report from Study
  Country: FR (occurrence: FR)
  Receive Date: 20201106
  Receipt Date: 20201208
  Transmission Date: 20210114
  Serious: Yes (Other)
  Sender: FDA-Public Use
  Company Number: FR-CELGENEUS-FRA-20201100381

PATIENT
  Age: 71 Year
  Sex: Female
  Weight: 70 kg

DRUGS (4)
  1. ENALAPRIL [Concomitant]
     Active Substance: ENALAPRIL
     Indication: HYPERTENSION
     Route: 065
     Dates: start: 1999
  2. RITUXIMAB. [Concomitant]
     Active Substance: RITUXIMAB
     Indication: LYMPHOMA
     Route: 065
     Dates: start: 20130605, end: 20140902
  3. SPIRONOLACTONE. [Concomitant]
     Active Substance: SPIRONOLACTONE
     Indication: HYPERTENSION
     Route: 065
  4. LENALIDOMIDE [Suspect]
     Active Substance: LENALIDOMIDE
     Indication: B-CELL LYMPHOMA
     Route: 048
     Dates: start: 20120606, end: 20131022

REACTIONS (1)
  - Renal cancer [Recovered/Resolved]

NARRATIVE: CASE EVENT DATE: 20200218
